FAERS Safety Report 7107410-2 (Version None)
Quarter: 2010Q4

REPORT INFORMATION
  Report Type: 
  Country: None (occurrence: None)
  Receive Date: 20101111
  Receipt Date: 20101111
  Transmission Date: 20110411
  Serious: Yes (Life-Threatening, Disabling)
  Sender: FDA-Public Use
  Company Number: None

PATIENT
  Age: 73 Year
  Sex: Male
  Weight: 66.2252 kg

DRUGS (1)
  1. WELCHOL [Suspect]
     Indication: DYSLIPIDAEMIA
     Dosage: 625 MG 3 TABLETS TWICE DAILY ORAL
     Route: 048
     Dates: start: 20100505, end: 20100808

REACTIONS (5)
  - ASTHENIA [None]
  - MYALGIA [None]
  - NAUSEA [None]
  - VOMITING [None]
  - WEIGHT DECREASED [None]
